FAERS Safety Report 9503638 (Version 1)
Quarter: 2013Q3

REPORT INFORMATION
  Report Type: Spontaneous
  Country: KR (occurrence: KR)
  Receive Date: 20130906
  Receipt Date: 20130906
  Transmission Date: 20140515
  Serious: Yes (Other)
  Sender: FDA-Public Use
  Company Number: PHHY2013KR095438

PATIENT
  Age: 53 Year
  Sex: Female

DRUGS (3)
  1. TACROLIMUS [Suspect]
     Dosage: 3 MG, BID
  2. METHYLPREDNISOLONE [Concomitant]
  3. MYCOPHENOLATE MOFETIL [Concomitant]

REACTIONS (3)
  - Arrhythmia supraventricular [Recovered/Resolved]
  - Extrasystoles [Recovered/Resolved]
  - Immunosuppressant drug level increased [Recovered/Resolved]
